FAERS Safety Report 10044235 (Version 2)
Quarter: 2014Q2

REPORT INFORMATION
  Report Type: Spontaneous
  Country: US (occurrence: US)
  Receive Date: 20140328
  Receipt Date: 20140421
  Transmission Date: 20141212
  Serious: No
  Sender: FDA-Public Use
  Company Number: US-B.I. PHARMACEUTICALS,INC./RIDGEFIELD-2014-BI-12727BP

PATIENT
  Age: 65 Year
  Sex: Female

DRUGS (15)
  1. SPIRIVA [Suspect]
     Indication: EMPHYSEMA
     Dosage: 18 MCG
     Route: 055
     Dates: start: 201308
  2. LORATIDINE [Concomitant]
     Indication: HYPERSENSITIVITY
     Dosage: 10 MG
     Route: 048
  3. TRENTAL [Concomitant]
     Indication: CARDIAC DISORDER
     Dosage: 1200 MG
     Route: 048
  4. CRESTOR [Concomitant]
     Indication: BLOOD CHOLESTEROL INCREASED
     Dosage: 20 MG
     Route: 048
  5. FUROSEMIDE [Concomitant]
     Indication: CARDIAC FAILURE CONGESTIVE
     Dosage: 120 MG
     Route: 048
  6. KLORCON [Concomitant]
     Dosage: 30 MEQ
     Route: 048
  7. LOSARTAN [Concomitant]
     Indication: CARDIAC FAILURE CONGESTIVE
     Dosage: 50 MG
     Route: 048
  8. FENOFIBRATE [Concomitant]
     Indication: BLOOD CHOLESTEROL INCREASED
     Dosage: 145 MG
     Route: 048
  9. OMEPRAZOLE [Concomitant]
     Indication: GASTROOESOPHAGEAL REFLUX DISEASE
     Dosage: 40 MG
     Route: 048
  10. VITAMIN E [Concomitant]
     Dosage: 400 U
     Route: 048
  11. MELATONIN [Concomitant]
     Indication: SLEEP DISORDER
     Dosage: 15 MG
     Route: 048
  12. VITAMIN C [Concomitant]
     Dosage: 500 MG
     Route: 048
  13. VITAMIN D 3 [Concomitant]
     Dosage: 1000 U
     Route: 048
  14. COQ 10 [Concomitant]
     Dosage: 100 MG
     Route: 048
  15. XOPENEX [Concomitant]
     Indication: EMPHYSEMA
     Dosage: 180 MCG
     Route: 055

REACTIONS (4)
  - Dyspnoea [Not Recovered/Not Resolved]
  - Product quality issue [Recovered/Resolved]
  - Product quality issue [Recovered/Resolved]
  - Product quality issue [Recovered/Resolved]
